FAERS Safety Report 25573678 (Version 2)
Quarter: 2025Q3

REPORT INFORMATION
  Report Type: Report from Study
  Country: US (occurrence: US)
  Receive Date: 20250717
  Receipt Date: 20250728
  Transmission Date: 20251020
  Serious: Yes (Other)
  Sender: AMGEN
  Company Number: US-AMGEN-USASL2025137727

PATIENT
  Sex: Male

DRUGS (1)
  1. SOTORASIB [Suspect]
     Active Substance: SOTORASIB
     Indication: Lung carcinoma cell type unspecified stage IV
     Dosage: 960 MILLIGRAM, QD
     Route: 065
     Dates: start: 202504

REACTIONS (1)
  - Liver injury [Recovering/Resolving]
